FAERS Safety Report 23292432 (Version 1)
Quarter: 2023Q4

REPORT INFORMATION
  Report Type: Other
  Country: None (occurrence: CN)
  Receive Date: 20231213
  Receipt Date: 20231213
  Transmission Date: 20240110
  Serious: Yes (Hospitalization, Other)
  Sender: FDA-Public Use
  Company Number: CN-B.Braun Medical Inc.-2149316

PATIENT
  Age: 51 Year
  Sex: Male

DRUGS (7)
  1. MANNITOL [Suspect]
     Active Substance: MANNITOL
     Indication: Intracranial pressure increased
  2. CORTISOL [Suspect]
     Active Substance: HYDROCORTISONE
  3. PEMETREXED [Concomitant]
     Active Substance: PEMETREXED
  4. CARBOPLATIN [Concomitant]
     Active Substance: CARBOPLATIN
  5. GEFITINIB [Concomitant]
     Active Substance: GEFITINIB
  6. AUMOLERTINIB [Concomitant]
     Active Substance: AUMOLERTINIB
  7. BEVACIZUMAB [Concomitant]
     Active Substance: BEVACIZUMAB

REACTIONS (1)
  - Drug ineffective [None]
